FAERS Safety Report 6154563-9 (Version None)
Quarter: 2009Q2

REPORT INFORMATION
  Report Type: 
  Country: None (occurrence: None)
  Receive Date: 20090414
  Receipt Date: 20090407
  Transmission Date: 20091009
  Serious: Yes (Hospitalization, Other)
  Sender: FDA-Public Use
  Company Number: US-CELGENEUS-163-21880-09040829

PATIENT
  Sex: Female

DRUGS (2)
  1. REVLIMID [Suspect]
     Indication: MULTIPLE MYELOMA
     Route: 048
     Dates: start: 20081013, end: 20081201
  2. REVLIMID [Suspect]
     Route: 048
     Dates: start: 20090409

REACTIONS (3)
  - ABDOMINAL STRANGULATED HERNIA [None]
  - BACK PAIN [None]
  - BLOOD COUNT ABNORMAL [None]
